FAERS Safety Report 8885136 (Version 7)
Quarter: 2013Q2

REPORT INFORMATION
  Report Type: Spontaneous
  Country: US (occurrence: US)
  Receive Date: 20121102
  Receipt Date: 20130611
  Transmission Date: 20140414
  Serious: Yes (Hospitalization, Disabling, Other)
  Sender: FDA-Public Use
  Company Number: US-009507513-1210USA010351

PATIENT
  Sex: Female
  Weight: 74.83 kg

DRUGS (10)
  1. FOSAMAX [Suspect]
     Indication: OSTEOPOROSIS
     Dosage: 10 MG, QD
     Route: 048
     Dates: start: 20010426, end: 200605
  2. FOSAMAX [Suspect]
     Indication: OSTEOPENIA
     Dosage: 70 MG, QW
     Route: 048
     Dates: start: 20010426
  3. ALENDRONATE SODIUM [Suspect]
     Indication: OSTEOPENIA
     Dosage: 70 MG, UNK
     Route: 048
     Dates: start: 20110529, end: 20111031
  4. ALENDRONATE SODIUM [Suspect]
     Indication: OSTEOPOROSIS
  5. CORTICOSTEROIDS (UNSPECIFIED) [Concomitant]
     Dosage: UNK
     Dates: start: 1972, end: 2011
  6. ZOCOR [Concomitant]
     Indication: HYPERLIPIDAEMIA
     Dosage: 80 MG, QD
     Route: 048
     Dates: start: 2000, end: 2007
  7. SINGULAIR [Concomitant]
     Indication: HYPERSENSITIVITY
     Dosage: 10 MG, QD
     Route: 048
     Dates: start: 200007
  8. RHINOCORT (BUDESONIDE) [Concomitant]
     Indication: ASTHMA
     Dosage: UNK
     Dates: start: 2001, end: 2003
  9. CALCIUM (UNSPECIFIED) (+) VITAMIN D (UNSPECIFIED) [Concomitant]
     Dosage: UNK
     Dates: start: 2002
  10. ASPIRIN [Concomitant]
     Dosage: UNK
     Dates: start: 2000

REACTIONS (35)
  - Intramedullary rod insertion [Unknown]
  - Medical device removal [Unknown]
  - Medical device removal [Unknown]
  - Femur fracture [Not Recovered/Not Resolved]
  - Humerus fracture [Unknown]
  - Surgery [Unknown]
  - Cataract operation [Unknown]
  - Low turnover osteopathy [Not Recovered/Not Resolved]
  - Stress fracture [Not Recovered/Not Resolved]
  - Osteoporosis [Not Recovered/Not Resolved]
  - Femur fracture [Not Recovered/Not Resolved]
  - Pain [Unknown]
  - Hypertension [Unknown]
  - Hypothyroidism [Unknown]
  - Infection [Unknown]
  - Chronic obstructive pulmonary disease [Unknown]
  - Cardiac murmur [Unknown]
  - Blood glucose increased [Unknown]
  - White blood cell count increased [Unknown]
  - Osteoarthritis [Unknown]
  - Joint crepitation [Unknown]
  - Haemorrhage [Unknown]
  - Left ventricular hypertrophy [Unknown]
  - Diastolic dysfunction [Unknown]
  - Aortic stenosis [Unknown]
  - Mitral valve disease [Unknown]
  - Tricuspid valve incompetence [Unknown]
  - Pulmonary hypertension [Unknown]
  - Eustachian tube disorder [Unknown]
  - Carpal tunnel syndrome [Unknown]
  - Vitamin D deficiency [Unknown]
  - Tendonitis [Unknown]
  - Constipation [Unknown]
  - Dizziness [Unknown]
  - Gastrooesophageal reflux disease [Unknown]
